FAERS Safety Report 17197932 (Version 1)
Quarter: 2019Q4

REPORT INFORMATION
  Report Type: Report from Study
  Country: US (occurrence: US)
  Receive Date: 20191225
  Receipt Date: 20191225
  Transmission Date: 20200122
  Serious: Yes (Hospitalization)
  Sender: FDA-Public Use
  Company Number: US-AMGEN-USANI2019212039

PATIENT
  Age: 35 Year
  Sex: Female
  Weight: 79.8 kg

DRUGS (11)
  1. TRASTUZUMAB. [Concomitant]
     Active Substance: TRASTUZUMAB
     Dosage: 651 MILLIGRAM
     Route: 042
     Dates: start: 20191127
  2. PERTUZUMAB. [Concomitant]
     Active Substance: PERTUZUMAB
     Dosage: 840 MILLIGRAM
     Route: 042
     Dates: start: 20191127
  3. EMLA [Concomitant]
     Active Substance: LIDOCAINE\PRILOCAINE
     Dosage: 2.5 UNK
     Route: 061
     Dates: start: 20191113
  4. CARBOPLATIN. [Concomitant]
     Active Substance: CARBOPLATIN
     Dosage: 850 MILLIGRAM
     Route: 042
     Dates: start: 20191127
  5. PROCHLORPERAZINE MALEATE. [Concomitant]
     Active Substance: PROCHLORPERAZINE MALEATE
     Dosage: 10 MILLIGRAM
     Route: 048
     Dates: start: 20191113
  6. FOSAPREPITANT DIMEGLUMINE. [Concomitant]
     Active Substance: FOSAPREPITANT DIMEGLUMINE
     Dosage: 150 MILLIGRAM
     Route: 042
     Dates: start: 20191127
  7. FILGRASTIM [Suspect]
     Active Substance: FILGRASTIM
     Indication: NEUTROPENIA
     Dosage: 6 MILLIGRAM
     Route: 058
     Dates: start: 20191127
  8. DOCETAXEL. [Concomitant]
     Active Substance: DOCETAXEL
     Dosage: 150 MILLIGRAM
     Route: 042
     Dates: start: 20191127
  9. ONDANSETRON [Concomitant]
     Active Substance: ONDANSETRON
     Dosage: 8-15 MILLIGRAM
     Route: 042
     Dates: start: 20191113
  10. DEXAMETHASONE. [Concomitant]
     Active Substance: DEXAMETHASONE
     Dosage: 8 MILLIGRAM
     Route: 048
     Dates: start: 20191113
  11. OMEPRAZOLE. [Concomitant]
     Active Substance: OMEPRAZOLE
     Dosage: 20 MILLIGRAM
     Route: 048
     Dates: start: 20191113

REACTIONS (1)
  - Haematuria [Recovered/Resolved]

NARRATIVE: CASE EVENT DATE: 20191130
